FAERS Safety Report 6365111-2 (Version None)
Quarter: 2009Q3

REPORT INFORMATION
  Report Type: 
  Country: None (occurrence: None)
  Receive Date: 20090919
  Receipt Date: 20090807
  Transmission Date: 20100115
  Serious: No
  Sender: FDA-Public Use
  Company Number: US-ABBOTT-09P-163-0590282-00

PATIENT
  Sex: Female
  Weight: 116.68 kg

DRUGS (3)
  1. HUMIRA [Suspect]
     Indication: PSORIASIS
     Route: 058
     Dates: start: 20081201
  2. VECTICAL [Concomitant]
     Indication: PSORIASIS
     Route: 061
  3. CLOBETASOL PROPIONATE [Concomitant]
     Indication: PSORIASIS
     Route: 061

REACTIONS (2)
  - DRUG INEFFECTIVE [None]
  - PSORIASIS [None]
